FAERS Safety Report 5060602-9 (Version None)
Quarter: 2006Q3

REPORT INFORMATION
  Report Type: 
  Country: None (occurrence: None)
  Receive Date: 20060720
  Receipt Date: 20060720
  Transmission Date: 20061208
  Serious: Yes (Hospitalization)
  Sender: FDA-Public Use
  Company Number: None

PATIENT
  Age: 64 Year
  Sex: Male
  Weight: 94.8 kg

DRUGS (4)
  1. AZITHROMYCIN [Suspect]
     Indication: CHRONIC OBSTRUCTIVE PULMONARY DISEASE
     Dosage: 500 MG ONCE; THEN, 250MG QD PO X 4 DAY
     Route: 048
     Dates: start: 20060628, end: 20060630
  2. DILTIAZEM HCL [Concomitant]
  3. LOXAPINE SUCCINATE [Concomitant]
  4. OMEPRAZOLE [Concomitant]

REACTIONS (1)
  - DIARRHOEA [None]
